FAERS Safety Report 8119456-6 (Version None)
Quarter: 2012Q1

REPORT INFORMATION
  Report Type: 
  Country: None (occurrence: None)
  Receive Date: 20120207
  Receipt Date: 20120126
  Transmission Date: 20120608
  Serious: Yes (Hospitalization)
  Sender: FDA-Public Use
  Company Number: PHHY2011IL41921

PATIENT
  Age: 62 Year
  Sex: Male

DRUGS (3)
  1. MYFORTIC [Concomitant]
     Dosage: 360 MG, BID
     Route: 048
  2. PREDNISONE [Concomitant]
     Dosage: 5 MG, UNK
     Route: 048
  3. CERTICAN [Suspect]
     Indication: RENAL TRANSPLANT
     Dosage: 1.25 MG, BID
     Route: 048

REACTIONS (7)
  - PROTEINURIA [None]
  - ERYTHEMA [None]
  - WOUND [None]
  - OEDEMA PERIPHERAL [None]
  - NEPHROTIC SYNDROME [None]
  - HYPOALBUMINAEMIA [None]
  - CELLULITIS [None]
